FAERS Safety Report 24996800 (Version 2)
Quarter: 2025Q1

REPORT INFORMATION
  Report Type: Spontaneous
  Country: RU (occurrence: RU)
  Receive Date: 20250221
  Receipt Date: 20250224
  Transmission Date: 20250409
  Serious: Yes (Other)
  Sender: ALEXION PHARMACEUTICALS
  Company Number: RU-AstraZeneca-CH-00802185A

PATIENT
  Weight: 29 kg

DRUGS (1)
  1. STRENSIQ [Suspect]
     Active Substance: ASFOTASE ALFA
     Indication: Hypophosphatasia
     Dosage: 2 MILLIGRAM/KILOGRAM, TIW (ON 60 MILLIGRAM)

REACTIONS (3)
  - Blood alkaline phosphatase decreased [Recovered/Resolved]
  - Lipodystrophy acquired [Recovered/Resolved]
  - Wrong technique in product usage process [Unknown]
